FAERS Safety Report 9602491 (Version 1)
Quarter: 2013Q4

REPORT INFORMATION
  Report Type: Spontaneous
  Country: US (occurrence: US)
  Receive Date: 20131007
  Receipt Date: 20131007
  Transmission Date: 20140711
  Serious: No
  Sender: FDA-Public Use
  Company Number: US-TEVA-436384USA

PATIENT
  Age: 80 Year
  Sex: Female
  Weight: 68.1 kg

DRUGS (1)
  1. PROAIR HFA [Suspect]
     Indication: RESPIRATORY DISORDER
     Dosage: 1-2 PUFFS EVERY 2-3 HOURS

REACTIONS (7)
  - Dyspnoea [Unknown]
  - Skin odour abnormal [Not Recovered/Not Resolved]
  - Irritability [Not Recovered/Not Resolved]
  - Screaming [Not Recovered/Not Resolved]
  - Asthenia [Not Recovered/Not Resolved]
  - Nervousness [Not Recovered/Not Resolved]
  - Tremor [Not Recovered/Not Resolved]
